FAERS Safety Report 15172491 (Version 1)
Quarter: 2018Q3

REPORT INFORMATION
  Report Type: Report from Study
  Country: US (occurrence: US)
  Receive Date: 20180720
  Receipt Date: 20180720
  Transmission Date: 20181010
  Serious: Yes (Other)
  Sender: FDA-Public Use
  Company Number: US-JNJFOC-20180718564

PATIENT
  Sex: Female

DRUGS (1)
  1. STELARA [Suspect]
     Active Substance: USTEKINUMAB
     Indication: CROHN^S DISEASE
     Route: 042
     Dates: start: 20180523

REACTIONS (4)
  - Haemorrhage [Unknown]
  - Loss of consciousness [Unknown]
  - Gastrointestinal sounds abnormal [Unknown]
  - Vertigo [Unknown]

NARRATIVE: CASE EVENT DATE: 2018
